FAERS Safety Report 9059378 (Version 1)
Quarter: 2013Q1

REPORT INFORMATION
  Report Type: Spontaneous
  Country: US (occurrence: US)
  Receive Date: 20130211
  Receipt Date: 20130211
  Transmission Date: 20140127
  Serious: Yes (Hospitalization)
  Sender: FDA-Public Use
  Company Number: US-GLAXOSMITHKLINE-A0817885A

PATIENT
  Age: 56 Year
  Sex: Female
  Weight: 132.9 kg

DRUGS (1)
  1. AVANDIA [Suspect]
     Indication: DIABETES MELLITUS
     Route: 048
     Dates: end: 200707

REACTIONS (5)
  - Cardiac failure congestive [Not Recovered/Not Resolved]
  - Myocardial ischaemia [Unknown]
  - Surgery [Unknown]
  - Dizziness [Unknown]
  - Disability [Unknown]
